FAERS Safety Report 7157719-1 (Version None)
Quarter: 2010Q4

REPORT INFORMATION
  Report Type: 
  Country: None (occurrence: None)
  Receive Date: 20101214
  Receipt Date: 20100608
  Transmission Date: 20110411
  Serious: No
  Sender: FDA-Public Use
  Company Number: US-ASTRAZENECA-2010SE04151

PATIENT
  Age: 60 Year
  Sex: Male
  Weight: 81.6 kg

DRUGS (5)
  1. CRESTOR [Suspect]
     Indication: BLOOD CHOLESTEROL INCREASED
     Route: 048
     Dates: start: 20090401, end: 20091001
  2. CRESTOR [Suspect]
     Route: 048
     Dates: start: 20100301, end: 20100501
  3. PRILOSEC [Concomitant]
  4. SINGULAIR [Concomitant]
  5. LORTAB [Concomitant]

REACTIONS (6)
  - ASTHENIA [None]
  - CHROMATURIA [None]
  - HEADACHE [None]
  - INFLUENZA LIKE ILLNESS [None]
  - MUSCULOSKELETAL PAIN [None]
  - MYALGIA [None]
